FAERS Safety Report 9395449 (Version 3)
Quarter: 2013Q3

REPORT INFORMATION
  Report Type: Report from Study
  Country: US (occurrence: US)
  Receive Date: 20130711
  Receipt Date: 20130819
  Transmission Date: 20140515
  Serious: Yes (Hospitalization)
  Sender: FDA-Public Use
  Company Number: US-ASTELLAS-2013US007197

PATIENT
  Age: 5 Year
  Sex: Male
  Weight: 19 kg

DRUGS (11)
  1. TACROLIMUS OINTMENT [Suspect]
     Indication: DERMATITIS ATOPIC
     Dosage: 0.1 %, BID
     Route: 061
     Dates: start: 20120127
  2. TACROLIMUS OINTMENT [Suspect]
     Dosage: 0.03 %, BID
     Route: 061
  3. XOPENEX [Concomitant]
     Indication: SEASONAL ALLERGY
     Dosage: 0.31MG/3ML, 3 ML, TID
     Route: 065
     Dates: start: 20111025
  4. XOPENEX [Concomitant]
     Indication: BRONCHIAL HYPERREACTIVITY
  5. ZYRTEC [Concomitant]
     Indication: COUGH
     Dosage: 1MG/ML, 5 ML, PRN, ONCE/DAY
     Route: 065
     Dates: start: 20121114
  6. UNSPECIFIED EYE DROPS [Concomitant]
     Indication: HYPERSENSITIVITY
     Dosage: BID
     Route: 047
  7. CLODERM                            /00212501/ [Concomitant]
     Indication: PRODUCT USED FOR UNKNOWN INDICATION
     Dosage: UNK
     Route: 061
  8. DEXAMETHASONE [Concomitant]
     Indication: PRODUCT USED FOR UNKNOWN INDICATION
     Dosage: UNK
     Route: 061
  9. HYDROXYZINE [Concomitant]
     Indication: PRURITUS
     Dosage: UNK
     Route: 065
  10. PATADAY [Concomitant]
     Indication: PRODUCT USED FOR UNKNOWN INDICATION
     Dosage: UNK
     Route: 065
  11. BENADRYL                           /00000402/ [Concomitant]
     Indication: PRODUCT USED FOR UNKNOWN INDICATION
     Dosage: UNK
     Route: 065

REACTIONS (7)
  - Off label use [Unknown]
  - Abscess [Recovered/Resolved]
  - Eczema [Recovering/Resolving]
  - Cellulitis [Recovered/Resolved]
  - Abscess [Recovered/Resolved]
  - Eczema [Recovered/Resolved]
  - Cellulitis [Recovered/Resolved]
